FAERS Safety Report 21283599 (Version 8)
Quarter: 2025Q1

REPORT INFORMATION
  Report Type: Report from Study
  Country: CO (occurrence: CO)
  Receive Date: 20220901
  Receipt Date: 20250327
  Transmission Date: 20250409
  Serious: Yes (Other)
  Sender: TAKEDA
  Company Number: CO-TAKEDA-CO202030889

PATIENT
  Age: 21 Year
  Sex: Female
  Weight: 54 kg

DRUGS (2)
  1. ICATIBANT [Suspect]
     Active Substance: ICATIBANT ACETATE
     Indication: Hereditary angioedema
  2. ICATIBANT [Suspect]
     Active Substance: ICATIBANT ACETATE

REACTIONS (9)
  - Syncope [Unknown]
  - Eating disorder [Unknown]
  - Insomnia [Unknown]
  - Depression [Unknown]
  - Weight decreased [Unknown]
  - Viral infection [Recovering/Resolving]
  - Decreased appetite [Unknown]
  - Feeling of despair [Unknown]
  - Nausea [Unknown]

NARRATIVE: CASE EVENT DATE: 20240106
